FAERS Safety Report 25793864 (Version 1)
Quarter: 2025Q3

REPORT INFORMATION
  Report Type: Spontaneous
  Country: CA (occurrence: CA)
  Receive Date: 20250912
  Receipt Date: 20250912
  Transmission Date: 20251021
  Serious: Yes (Hospitalization)
  Sender: ACCORD
  Company Number: None

PATIENT
  Age: 88 Year
  Sex: Male
  Weight: 72 kg

DRUGS (7)
  1. APIXABAN [Suspect]
     Active Substance: APIXABAN
     Indication: Atrial fibrillation
     Route: 048
  2. ALTACE [Concomitant]
     Active Substance: RAMIPRIL
  3. AMIODARONE [Concomitant]
     Active Substance: AMIODARONE
  4. ARICEPT [Concomitant]
     Active Substance: DONEPEZIL HYDROCHLORIDE
  5. CRESTOR [Concomitant]
     Active Substance: ROSUVASTATIN CALCIUM
  6. EZETIMIBE [Concomitant]
     Active Substance: EZETIMIBE
  7. SYMBICORT [Concomitant]
     Active Substance: BUDESONIDE\FORMOTEROL FUMARATE DIHYDRATE

REACTIONS (2)
  - Subarachnoid haemorrhage [Recovered/Resolved]
  - Fall [Recovered/Resolved]
